FAERS Safety Report 9564005 (Version 2)
Quarter: 2013Q4

REPORT INFORMATION
  Report Type: Report from Study
  Country: US (occurrence: US)
  Receive Date: 20130928
  Receipt Date: 20131015
  Transmission Date: 20140711
  Serious: Yes (Hospitalization)
  Sender: FDA-Public Use
  Company Number: US-BRISTOL-MYERS SQUIBB COMPANY-19407493

PATIENT
  Age: 69 Year
  Sex: Female
  Weight: 84.36 kg

DRUGS (1)
  1. IXEMPRA [Suspect]
     Indication: UTERINE CANCER
     Dosage: LAST ADMINISTERED DATE 31/07/2013?CYCLE 3
     Route: 042
     Dates: start: 20130513

REACTIONS (10)
  - Febrile neutropenia [Recovering/Resolving]
  - Hypertension [Recovering/Resolving]
  - Alopecia [Recovering/Resolving]
  - Dyspnoea [Recovering/Resolving]
  - Peripheral sensory neuropathy [Recovering/Resolving]
  - Dehydration [Recovering/Resolving]
  - Hypokalaemia [Recovering/Resolving]
  - Hypomagnesaemia [Recovering/Resolving]
  - Blood creatinine increased [Recovering/Resolving]
  - Fatigue [Recovering/Resolving]
